FAERS Safety Report 8818665 (Version 1)
Quarter: 2012Q4

REPORT INFORMATION
  Report Type: 
  Country: US (occurrence: US)
  Receive Date: 20121002
  Receipt Date: 20121002
  Transmission Date: 20130627
  Serious: No
  Sender: FDA-Public Use
  Company Number: US-COVIDIEN/TYCO HEALTHCARE/MALLINCKRODT-T201102360

PATIENT
  Age: 51 Year
  Sex: Male

DRUGS (11)
  1. EXALGO EXTENDED RELEASE [Suspect]
     Indication: HIV ASSOCIATED NEPHROPATHY
     Dosage: 12 mg, qd
     Dates: start: 20101117, end: 20101123
  2. EXALGO EXTENDED RELEASE [Suspect]
     Dosage: 16 mg, qd
     Dates: start: 20101124, end: 20110214
  3. ATRIPLA [Concomitant]
     Indication: HIV INFECTION
     Dosage: UNK
     Dates: start: 20100510
  4. CYMBALTA [Concomitant]
     Indication: NEURALGIA
     Dosage: 60 mg, qd
     Dates: start: 20101017, end: 20101119
  5. EMBEDDA [Concomitant]
     Indication: NEURALGIA
     Dosage: 90 mg qd
     Dates: start: 20101017, end: 20101116
  6. AMBIEN [Concomitant]
     Indication: INSOMNIA
     Dosage: 10 mg, prn
     Dates: start: 20060215
  7. ALPRAZOLAM [Concomitant]
     Indication: ANXIETY
     Dosage: 0.5 mg, prn
     Dates: start: 20100410
  8. ALBUTEROL                          /00139501/ [Concomitant]
     Indication: ASTHMA
     Dosage: 2 puffs prn
     Dates: start: 19850112
  9. SEREVENT                           /00954701/ [Concomitant]
     Indication: ASTHMA
     Dosage: 1 puff qd
     Dates: start: 19850112
  10. FLOVENT [Concomitant]
     Indication: SEASONAL ALLERGY
     Dosage: 2 puffs bid
     Dates: start: 19850112
  11. VICODIN [Concomitant]
     Indication: NEURALGIA
     Dosage: 5/500 1 tab prn
     Dates: start: 20101210

REACTIONS (2)
  - Gastroenteritis viral [Recovered/Resolved]
  - Breakthrough pain [Not Recovered/Not Resolved]
